FAERS Safety Report 8716326 (Version 2)
Quarter: 2013Q4

REPORT INFORMATION
  Report Type: Spontaneous
  Country: JP (occurrence: JP)
  Receive Date: 20120810
  Receipt Date: 20131031
  Transmission Date: 20140711
  Serious: Yes (Hospitalization, Other)
  Sender: FDA-Public Use
  Company Number: JP-009507513-1208JPN002575

PATIENT
  Age: 43 Year
  Sex: Female

DRUGS (4)
  1. REFLEX [Suspect]
     Indication: DEPRESSION
     Dosage: 15 MG, QD
     Route: 048
     Dates: start: 20120718, end: 20120722
  2. REFLEX [Suspect]
     Dosage: 7.5 MG, QD
     Route: 048
     Dates: start: 20120723, end: 20120802
  3. CLONAZEPAM [Concomitant]
     Dosage: 0.5 MG, QD
     Route: 048
     Dates: start: 201205
  4. GABAPENTIN [Concomitant]
     Dosage: 400 MG, QD
     Route: 048
     Dates: start: 201205

REACTIONS (2)
  - Convulsion [Unknown]
  - Altered state of consciousness [Unknown]
